FAERS Safety Report 10403019 (Version 1)
Quarter: 2014Q3

REPORT INFORMATION
  Report Type: Spontaneous
  Country: US (occurrence: None)
  Receive Date: 20140820
  Receipt Date: 20140820
  Transmission Date: 20150326
  Serious: Yes (Other)
  Sender: FDA-Public Use
  Company Number: 2010S1000555

PATIENT
  Age: 66 Year
  Sex: Male
  Weight: 93 kg

DRUGS (4)
  1. NIACIN (NICTOINIC ACID) [Concomitant]
  2. PHOSPHO-SODA [Suspect]
     Active Substance: SODIUM PHOSPHATE, DIBASIC\SODIUM PHOSPHATE, MONOBASIC
     Indication: COLONOSCOPY
     Route: 048
     Dates: start: 20050501
  3. CRESTOR [Concomitant]
     Active Substance: ROSUVASTATIN CALCIUM
  4. MICARDIS [Concomitant]
     Active Substance: TELMISARTAN

REACTIONS (5)
  - Renal atrophy [None]
  - Renal artery stenosis [None]
  - Hydronephrosis [None]
  - Renal cyst [None]
  - Renal failure chronic [None]
